FAERS Safety Report 7640093-1 (Version None)
Quarter: 2011Q3

REPORT INFORMATION
  Report Type: 
  Country: None (occurrence: None)
  Receive Date: 20110727
  Receipt Date: 20110721
  Transmission Date: 20111222
  Serious: Yes (Hospitalization, Other)
  Sender: FDA-Public Use
  Company Number: US-BRISTOL-MYERS SQUIBB COMPANY-15916299

PATIENT
  Age: 72 Year
  Sex: Male
  Weight: 80 kg

DRUGS (1)
  1. IPILIMUMAB [Suspect]
     Indication: MALIGNANT MELANOMA
     Dosage: CYCLE 21DAYS,10MG/KGOVER 90 MIN ON DAY 1,1 Q 12 WEEKS,LAST DOSE ON 06JUL11
     Route: 042
     Dates: start: 20110427

REACTIONS (5)
  - HYPOTENSION [None]
  - NEUTROPHIL COUNT DECREASED [None]
  - HYPOALBUMINAEMIA [None]
  - PLATELET COUNT DECREASED [None]
  - WHITE BLOOD CELL COUNT DECREASED [None]
